FAERS Safety Report 6901690-1 (Version None)
Quarter: 2010Q3

REPORT INFORMATION
  Report Type: 
  Country: None (occurrence: None)
  Receive Date: 20100803
  Receipt Date: 20080304
  Transmission Date: 20110219
  Serious: No
  Sender: FDA-Public Use
  Company Number: US-PFIZER INC-2008020544

PATIENT
  Sex: Female
  Weight: 81.8 kg

DRUGS (5)
  1. LYRICA [Suspect]
     Indication: MULTIPLE SCLEROSIS
     Dates: start: 20080224
  2. LYRICA [Suspect]
     Indication: PAIN
  3. COPAXONE [Concomitant]
  4. WELLBUTRIN [Concomitant]
     Dates: start: 20010101
  5. VALIUM [Concomitant]

REACTIONS (2)
  - ABDOMINAL DISTENSION [None]
  - WEIGHT INCREASED [None]
